FAERS Safety Report 12277116 (Version 1)
Quarter: 2016Q2

REPORT INFORMATION
  Report Type: Spontaneous
  Country: US (occurrence: US)
  Receive Date: 20160418
  Receipt Date: 20160418
  Transmission Date: 20160815
  Serious: No
  Sender: FDA-Public Use
  Company Number: US-MYLANLABS-2015M1010594

PATIENT
  Age: 82 Year
  Sex: Female
  Weight: 63.49 kg

DRUGS (3)
  1. FUROSEMIDE. [Concomitant]
     Active Substance: FUROSEMIDE
     Dosage: 20 MG, QOD
     Route: 048
  2. DILTIAZEM HYDROCHLORIDE EXTENDED-RELEASE CAPSULES, USP [Suspect]
     Active Substance: DILTIAZEM HYDROCHLORIDE
     Indication: HYPERTENSION
     Dosage: 240 MG, QD
     Route: 048
     Dates: start: 20150311, end: 20150318
  3. DILTIAZEM HYDROCHLORIDE EXTENDED-RELEASE CAPSULES, USP [Suspect]
     Active Substance: DILTIAZEM HYDROCHLORIDE
     Indication: HYPERTENSION
     Dosage: 120 MG, QD
     Route: 048
     Dates: start: 20150301, end: 20150311

REACTIONS (2)
  - Malaise [Recovered/Resolved]
  - Hypertension [Recovering/Resolving]

NARRATIVE: CASE EVENT DATE: 201503
